FAERS Safety Report 26091661 (Version 1)
Quarter: 2025Q4

REPORT INFORMATION
  Report Type: Spontaneous
  Country: US (occurrence: US)
  Receive Date: 20251126
  Receipt Date: 20251126
  Transmission Date: 20260117
  Serious: Yes (Other)
  Sender: MERZ
  Company Number: US-MRZWEB-2025110000144

PATIENT

DRUGS (2)
  1. XEOMIN [Suspect]
     Active Substance: INCOBOTULINUMTOXINA
     Indication: Skin wrinkling
     Dosage: 12 INTERNATIONAL UNIT
  2. XEOMIN [Suspect]
     Active Substance: INCOBOTULINUMTOXINA

REACTIONS (1)
  - Anaphylactic reaction [Recovering/Resolving]
